FAERS Safety Report 16904412 (Version 1)
Quarter: 2019Q4

REPORT INFORMATION
  Report Type: Spontaneous
  Country: US (occurrence: US)
  Receive Date: 20190819
  Receipt Date: 20190819
  Transmission Date: 20200122
  Serious: No
  Sender: FDA-Public Use
  Company Number: None

PATIENT
  Age: 53 Year
  Sex: Male

DRUGS (1)
  1. INLYTA [Suspect]
     Active Substance: AXITINIB
     Indication: RENAL CANCER
     Route: 048
     Dates: start: 20190701

REACTIONS (7)
  - Hypophagia [None]
  - Peripheral swelling [None]
  - Pain in extremity [None]
  - Lip pain [None]
  - Dry skin [None]
  - Oral pain [None]
  - Glossodynia [None]

NARRATIVE: CASE EVENT DATE: 20190801
